FAERS Safety Report 25041454 (Version 4)
Quarter: 2025Q2

REPORT INFORMATION
  Report Type: Report from Study
  Country: DE (occurrence: DE)
  Receive Date: 20250305
  Receipt Date: 20250417
  Transmission Date: 20250716
  Serious: Yes (Hospitalization)
  Sender: JOHNSON AND JOHNSON
  Company Number: DE-JNJFOC-20250305468

PATIENT
  Age: 71 Year
  Sex: Male
  Weight: 61.1 kg

DRUGS (16)
  1. CILTACABTAGENE AUTOLEUCEL [Suspect]
     Active Substance: CILTACABTAGENE AUTOLEUCEL
     Indication: Plasma cell myeloma
     Route: 042
     Dates: start: 20241202, end: 20241202
  2. INNOHEP [Concomitant]
     Active Substance: TINZAPARIN SODIUM
     Indication: Thrombosis
     Route: 058
     Dates: start: 20250130
  3. PREGABALIN [Concomitant]
     Active Substance: PREGABALIN
     Indication: Osteolysis
     Route: 048
     Dates: start: 20241125
  4. METAMIZOLE [Concomitant]
     Active Substance: METAMIZOLE
     Indication: Osteolysis
     Route: 048
     Dates: start: 20241125
  5. ACYCLOVIR [Concomitant]
     Active Substance: ACYCLOVIR
     Indication: Prophylaxis
     Route: 048
     Dates: start: 20241202
  6. TAMSULOSIN RETARD ZENTIVA [Concomitant]
     Indication: Benign prostatic hyperplasia
     Route: 048
     Dates: start: 20241125
  7. TAMSULOSIN RETARD ZENTIVA [Concomitant]
     Route: 048
     Dates: start: 20250129
  8. SOLIFEN [Concomitant]
     Indication: Benign prostatic hyperplasia
     Route: 048
     Dates: start: 20241125
  9. SOLIFEN [Concomitant]
     Route: 048
     Dates: start: 20250129
  10. FOLIC ACID [Concomitant]
     Active Substance: FOLIC ACID
     Indication: Folate deficiency
     Route: 048
     Dates: start: 20241203
  11. POTASSIUM CHLORIDE [Concomitant]
     Active Substance: POTASSIUM CHLORIDE
     Indication: Prophylaxis
     Route: 048
     Dates: start: 20241208
  12. CALCIUM [Concomitant]
     Active Substance: CALCIUM
     Indication: Prophylaxis
     Route: 048
     Dates: start: 20241125
  13. PANTOPRAZOLE [Concomitant]
     Active Substance: PANTOPRAZOLE
     Indication: Prophylaxis
     Route: 048
     Dates: start: 20241125
  14. ELIQUIS [Concomitant]
     Active Substance: APIXABAN
     Indication: Thrombosis
     Route: 048
     Dates: start: 20250129
  15. XGEVA [Concomitant]
     Active Substance: DENOSUMAB
     Indication: Osteolysis
     Route: 058
     Dates: start: 20250102, end: 20250102
  16. XGEVA [Concomitant]
     Active Substance: DENOSUMAB
     Route: 058
     Dates: start: 20250110, end: 20250110

REACTIONS (4)
  - Facial paralysis [Not Recovered/Not Resolved]
  - Constipation [Recovered/Resolved]
  - Infection [Recovered/Resolved]
  - Abdominal pain upper [Recovered/Resolved]

NARRATIVE: CASE EVENT DATE: 20241204
